FAERS Safety Report 7091777-8 (Version None)
Quarter: 2010Q4

REPORT INFORMATION
  Report Type: 
  Country: None (occurrence: None)
  Receive Date: 20101109
  Receipt Date: 20101102
  Transmission Date: 20110411
  Serious: Yes (Other)
  Sender: FDA-Public Use
  Company Number: US-AMGEN-QUU435523

PATIENT

DRUGS (6)
  1. NEULASTA [Suspect]
     Dosage: UNK UNK, UNK
     Route: 065
  2. RITUXIMAB [Concomitant]
     Dosage: UNK UNK, UNK
  3. CYCLOPHOSPHAMIDE [Concomitant]
     Dosage: UNK UNK, UNK
  4. DOXORUBICIN HCL [Concomitant]
     Dosage: UNK UNK, UNK
  5. VINCRISTINE SULFATE [Concomitant]
     Dosage: UNK UNK, UNK
  6. PREDNISONE [Concomitant]
     Dosage: UNK UNK, UNK

REACTIONS (2)
  - PLATELET COUNT DECREASED [None]
  - WHITE BLOOD CELL COUNT DECREASED [None]
